FAERS Safety Report 16903269 (Version 2)
Quarter: 2020Q4

REPORT INFORMATION
  Report Type: Spontaneous
  Country: JP (occurrence: JP)
  Receive Date: 20191010
  Receipt Date: 20201014
  Transmission Date: 20210113
  Serious: Yes (Other)
  Sender: FDA-Public Use
  Company Number: JP-ORPHAN EUROPE-2075505

PATIENT
  Age: 4 Year
  Sex: Female
  Weight: 17.5 kg

DRUGS (6)
  1. GENOTROPIN GOQUICK [Concomitant]
     Active Substance: SOMATROPIN
     Dates: start: 20180228
  2. CARBAGLU [Suspect]
     Active Substance: CARGLUMIC ACID
     Route: 050
     Dates: start: 20180726, end: 20180728
  3. INCREMIN [Concomitant]
     Dates: end: 20190507
  4. CARBAGLU [Suspect]
     Active Substance: CARGLUMIC ACID
     Dates: start: 20190726
  5. CARBAGLU [Suspect]
     Active Substance: CARGLUMIC ACID
     Indication: HYPERAMMONAEMIA
     Route: 050
     Dates: start: 20180115, end: 20180119
  6. CARBAGLU [Suspect]
     Active Substance: CARGLUMIC ACID
     Route: 050
     Dates: start: 20180811

REACTIONS (2)
  - Hyperparathyroidism secondary [Recovering/Resolving]
  - Hyperuricaemia [Recovering/Resolving]

NARRATIVE: CASE EVENT DATE: 20181225
